FAERS Safety Report 13945306 (Version 1)
Quarter: 2017Q3

REPORT INFORMATION
  Report Type: Spontaneous
  Country: US (occurrence: US)
  Receive Date: 20170907
  Receipt Date: 20170907
  Transmission Date: 20171128
  Serious: No
  Sender: FDA-Public Use
  Company Number: US-PFIZER INC-2017378470

PATIENT
  Age: 33 Year
  Sex: Female

DRUGS (1)
  1. SULFASALAZINE. [Suspect]
     Active Substance: SULFASALAZINE
     Dosage: 2000 MG, DAILY

REACTIONS (28)
  - Musculoskeletal stiffness [Unknown]
  - Psoriasis [Unknown]
  - Paraesthesia [Unknown]
  - Anxiety [Unknown]
  - Myalgia [Unknown]
  - Night sweats [Unknown]
  - Headache [Unknown]
  - Joint contracture [Unknown]
  - Soft tissue swelling [Unknown]
  - Red blood cell sedimentation rate increased [Unknown]
  - C-reactive protein increased [Unknown]
  - Arthralgia [Unknown]
  - Asthenia [Unknown]
  - Arthropathy [Unknown]
  - Depression [Unknown]
  - Diarrhoea [Unknown]
  - Skin lesion [Unknown]
  - Panic attack [Unknown]
  - Hypoaesthesia [Unknown]
  - Pyrexia [Unknown]
  - Nausea [Unknown]
  - Musculoskeletal pain [Unknown]
  - Fatigue [Unknown]
  - Ocular hyperaemia [Unknown]
  - Alopecia [Unknown]
  - Nodule [Unknown]
  - Agitation [Unknown]
  - Rheumatoid factor increased [Unknown]
